FAERS Safety Report 6331239-6 (Version None)
Quarter: 2009Q3

REPORT INFORMATION
  Report Type: 
  Country: None (occurrence: None)
  Receive Date: 20090827
  Receipt Date: 20090821
  Transmission Date: 20100115
  Serious: Yes (Hospitalization)
  Sender: FDA-Public Use
  Company Number: FR-BRISTOL-MYERS SQUIBB COMPANY-14753115

PATIENT
  Age: 80 Year
  Sex: Male

DRUGS (8)
  1. GLUCOPHAGE [Suspect]
     Indication: TYPE 2 DIABETES MELLITUS
     Route: 048
     Dates: end: 20090723
  2. LASIX [Concomitant]
     Indication: HYPERTENSION
     Dosage: 40 MG,TABLET
     Route: 048
  3. TAHOR [Concomitant]
     Dosage: 10MG,COATED TABLET
  4. KARDEGIC [Concomitant]
     Dosage: 160 MG,POWDER FOR ORAL SOLUTION
     Route: 048
  5. CARDENSIEL [Concomitant]
     Indication: CARDIAC FAILURE
     Dosage: 5MG.COATED TABLET
     Route: 048
  6. LAROXYL [Concomitant]
     Dosage: 25MG,COATED TABLET
     Route: 048
  7. MOPRAL [Concomitant]
     Dosage: 10MG,GASTO-RESISTANT TABLET
     Route: 048
  8. POTASSIUM GLUCONATE TAB [Concomitant]
     Dosage: TAKEN IN MORNING TAKEN TILL 25JUL09.
     Route: 048

REACTIONS (5)
  - ACID BASE BALANCE ABNORMAL [None]
  - CARDIAC FAILURE [None]
  - HYPERLACTACIDAEMIA [None]
  - PULMONARY EMBOLISM [None]
  - TACHYPNOEA [None]
